FAERS Safety Report 7907173-4 (Version None)
Quarter: 2011Q4

REPORT INFORMATION
  Report Type: 
  Country: None (occurrence: None)
  Receive Date: 20111110
  Receipt Date: 20110721
  Transmission Date: 20120403
  Serious: No
  Sender: FDA-Public Use
  Company Number: US-BAYER-2011-066012

PATIENT
  Sex: Female

DRUGS (4)
  1. ALEVE (CAPLET) [Suspect]
     Indication: VOMITING
  2. ALEVE (CAPLET) [Suspect]
     Indication: HEADACHE
  3. ALEVE (CAPLET) [Suspect]
     Indication: PAIN
  4. ASPIRIN [Suspect]

REACTIONS (1)
  - DRUG INEFFECTIVE [None]
